FAERS Safety Report 22280382 (Version 1)
Quarter: 2023Q2

REPORT INFORMATION
  Report Type: Spontaneous
  Country: PH (occurrence: PH)
  Receive Date: 20230503
  Receipt Date: 20230503
  Transmission Date: 20230722
  Serious: Yes (Death, Other)
  Sender: FDA-Public Use
  Company Number: PH-PFIZER INC-PV202300077526

PATIENT
  Sex: Male

DRUGS (1)
  1. CRIZOTINIB [Suspect]
     Active Substance: CRIZOTINIB
     Indication: Non-small cell lung cancer
     Dosage: UNK

REACTIONS (3)
  - Death [Fatal]
  - Blindness [Unknown]
  - Vitreous floaters [Unknown]
